FAERS Safety Report 5764839-2 (Version None)
Quarter: 2008Q2

REPORT INFORMATION
  Report Type: 
  Country: None (occurrence: None)
  Receive Date: 20080602
  Receipt Date: 20070423
  Transmission Date: 20081010
  Serious: Yes (Disabling)
  Sender: FDA-Public Use
  Company Number: WAES 0704USA05021

PATIENT
  Age: 61 Year
  Sex: Male

DRUGS (11)
  1. EMEND [Suspect]
     Indication: NAUSEA
     Dosage: 125 MG/1X/PO ; 80 MG/DAILY/PO
     Route: 048
     Dates: start: 20070419, end: 20070419
  2. EMEND [Suspect]
     Indication: NAUSEA
     Dosage: 125 MG/1X/PO ; 80 MG/DAILY/PO
     Route: 048
     Dates: start: 20070420, end: 20070421
  3. ATIVAN [Concomitant]
  4. COLACE [Concomitant]
  5. DECADRON SRC [Concomitant]
  6. ZOFRAN [Concomitant]
  7. ZOLOFT [Concomitant]
  8. CALCIUM (UNSPECIFIED) [Concomitant]
  9. LEUCOVORIN CALCIUM [Concomitant]
  10. METHOTREXATE [Concomitant]
  11. VITAMINS (UNSPECIFIED) [Concomitant]

REACTIONS (2)
  - HICCUPS [None]
  - INSOMNIA [None]
